FAERS Safety Report 8623260-X (Version None)
Quarter: 2012Q3

REPORT INFORMATION
  Report Type: 
  Country: None (occurrence: None)
  Receive Date: 20120827
  Receipt Date: 20120823
  Transmission Date: 20120928
  Serious: Yes (Hospitalization)
  Sender: FDA-Public Use
  Company Number: GB-SANOFI-AVENTIS-2012SA060915

PATIENT
  Sex: Female

DRUGS (12)
  1. DIAZEPAM [Suspect]
     Dosage: DOSE- 5 + DAILY DOSE - 10, UNITS - NBOT SPECIFIED
     Route: 065
  2. CYCLIZINE [Suspect]
     Dosage: DOSE- 50, DAILY DOSE - 150, UNITS - NOT SPECIFIED.
     Route: 065
  3. LANSOPRAZOLE [Suspect]
     Dosage: DOSE + DAILY DOSE - 30, UNITS - NOT SPECIFIED
     Route: 065
  4. FUROSEMIDE [Suspect]
     Dosage: DOSE + DAILY DOSE - 40 , UNITS -NOT SPECIFIED
     Route: 065
  5. ALBUTEROL SULATE [Suspect]
     Dosage: TWO PUFFS WHEN REQUIRED. DOSE - 2, UNITS - NOT SPECIFIED
     Route: 065
  6. ASPIRIN [Suspect]
     Dosage: DOSE + DAILY DOSE - 75, UNITS - NOT SPECIFIED
     Route: 065
  7. FELODIPINE [Suspect]
     Dosage: DOSE + DAILY DOSE- 10, UNITS - NOPT SPECIFIED
     Route: 065
  8. ISOSORBIDE MONONITRATE [Suspect]
     Dosage: DOSE + DAILY DOSE - 60, UNITS - NOT SPECIFIED
     Route: 065
  9. PAROXETINE [Suspect]
     Dosage: DOSE + DAILY DOSE - 30 , UNITS - NOT SPECIFIED
     Route: 065
  10. SIMVASTATIN [Suspect]
     Dosage: DOSE + DAILY DOSE - 40 , UNITS NOT SPECIFIED.
     Route: 065
  11. GLICLAZIDE [Suspect]
     Dosage: DOSE - 160, UNITS - NOT SPECIFIED, DAILY DOSE - 320, UNITS- NOT SPECIFIED
     Route: 065
  12. HYOSCINE BUTYLBROMIDE [Suspect]
     Dosage: DOSE -20, DAILY DOSE-40 , UNITS - NOT SPECIFIED
     Route: 065

REACTIONS (1)
  - ANGIOEDEMA [None]
